FAERS Safety Report 5494096-6 (Version None)
Quarter: 2007Q4

REPORT INFORMATION
  Report Type: 
  Country: None (occurrence: None)
  Receive Date: 20071022
  Receipt Date: 20071016
  Transmission Date: 20080405
  Serious: Yes (Death)
  Sender: FDA-Public Use
  Company Number: 2007333267

PATIENT
  Age: 3 Month
  Sex: Male

DRUGS (3)
  1. PEDIACARE DECONGESTANT (PSEUDOEPHEDRINE) [Suspect]
     Indication: PRURITUS
     Dosage: 1/8 DROPPER 2X'S A DAY (2 IN 1 D), ORAL
     Route: 048
     Dates: start: 20070702, end: 20070702
  2. CORTIZONE (HYDROCORTISONE) [Concomitant]
  3. AMOXICILLIN [Concomitant]

REACTIONS (1)
  - ECZEMA [None]
